FAERS Safety Report 25048835 (Version 1)
Quarter: 2025Q1

REPORT INFORMATION
  Report Type: Report from Study
  Country: TR (occurrence: TR)
  Receive Date: 20250307
  Receipt Date: 20250307
  Transmission Date: 20250409
  Serious: Yes (Other)
  Sender: ABBVIE
  Company Number: TR-ABBVIE-6166585

PATIENT
  Sex: Female

DRUGS (3)
  1. CARBIDOPA\LEVODOPA [Suspect]
     Active Substance: CARBIDOPA\LEVODOPA
     Indication: Parkinson^s disease
     Route: 050
     Dates: start: 20140708
  2. CARBIDOPA\LEVODOPA [Suspect]
     Active Substance: CARBIDOPA\LEVODOPA
  3. DOPADEX SR [Concomitant]
     Indication: Parkinson^s disease
     Dosage: 200 MILLIGRAM
     Route: 048
     Dates: start: 20230912

REACTIONS (1)
  - Vitamin B12 decreased [Not Recovered/Not Resolved]
